FAERS Safety Report 7953151-9 (Version None)
Quarter: 2011Q4

REPORT INFORMATION
  Report Type: 
  Country: None (occurrence: None)
  Receive Date: 20111201
  Receipt Date: 20111011
  Transmission Date: 20120403
  Serious: Yes (Hospitalization)
  Sender: FDA-Public Use
  Company Number: US-ROCHE-1015666

PATIENT
  Sex: Male

DRUGS (3)
  1. CETUXIMAB [Suspect]
     Indication: HEAD AND NECK CANCER
     Dosage: 400/250 MG WEEKLY
     Route: 042
     Dates: start: 20110801, end: 20110929
  2. AVASTIN [Suspect]
     Indication: HEAD AND NECK CANCER
     Route: 042
     Dates: start: 20110809, end: 20110920
  3. PEMETREXED DISODIUM [Suspect]
     Indication: HEAD AND NECK CANCER
     Route: 042
     Dates: start: 20110809, end: 20110920

REACTIONS (3)
  - SEPSIS [None]
  - HYPOVOLAEMIC SHOCK [None]
  - PNEUMONIA [None]
